FAERS Safety Report 25140206 (Version 6)
Quarter: 2025Q3

REPORT INFORMATION
  Report Type: Spontaneous
  Country: JP (occurrence: JP)
  Receive Date: 20250331
  Receipt Date: 20250903
  Transmission Date: 20251021
  Serious: Yes (Other)
  Sender: ALEXION PHARMACEUTICALS
  Company Number: JP-ASTRAZENECA-250028348_013120_P_1

PATIENT
  Age: 72 Year
  Sex: Male
  Weight: 74 kg

DRUGS (10)
  1. IMFINZI [Suspect]
     Active Substance: DURVALUMAB
     Indication: Hepatocellular carcinoma
     Dosage: 1500 MILLIGRAM, Q4W
     Dates: start: 20250107, end: 20250204
  2. IMFINZI [Suspect]
     Active Substance: DURVALUMAB
     Dosage: 1500 MILLIGRAM, Q4W
     Dates: start: 20250422
  3. IMJUDO [Suspect]
     Active Substance: TREMELIMUMAB\TREMELIMUMAB-ACTL
     Indication: Hepatocellular carcinoma
     Dates: start: 20250107, end: 20250107
  4. WARFARIN [Concomitant]
     Active Substance: WARFARIN
     Indication: Portal vein thrombosis
     Dates: start: 20241206, end: 20250209
  5. LANSOPRAZOLE [Concomitant]
     Active Substance: LANSOPRAZOLE
     Dosage: 15 MILLIGRAM, QD
     Dates: start: 20241101
  6. Kaywan [Concomitant]
     Indication: Procoagulant therapy
     Dosage: 5 MILLIGRAM, TID
     Dates: start: 20250210, end: 20250221
  7. DIETARY SUPPLEMENT\PROBIOTICS [Concomitant]
     Active Substance: DIETARY SUPPLEMENT\PROBIOTICS NOS
     Dosage: 2 MILLIGRAM, TID
     Dates: start: 20250210, end: 20250213
  8. MIYA-BM [Concomitant]
     Active Substance: CLOSTRIDIUM BUTYRICUM SPORES STRAIN M-55
     Dosage: 2 DOSAGE FORM, TID
     Dates: start: 20250214
  9. ENSURE [Concomitant]
     Active Substance: AMINO ACIDS\DEXTROSE\ELECTROLYTES NOS\SOYBEAN OIL\VITAMINS
  10. URSO [Concomitant]
     Active Substance: URSODIOL
     Indication: Liver disorder
     Dosage: DOSE UNKNOWN
     Dates: start: 20250321

REACTIONS (3)
  - Immune-mediated enterocolitis [Recovering/Resolving]
  - Cystitis haemorrhagic [Recovered/Resolved]
  - Liver disorder [Unknown]

NARRATIVE: CASE EVENT DATE: 20250205
